FAERS Safety Report 8384455-6 (Version None)
Quarter: 2012Q2

REPORT INFORMATION
  Report Type: 
  Country: None (occurrence: None)
  Receive Date: 20120524
  Receipt Date: 20120425
  Transmission Date: 20120825
  Serious: Yes (Hospitalization)
  Sender: FDA-Public Use
  Company Number: JP-GLAXOSMITHKLINE-B0798661A

PATIENT
  Age: 31 Year
  Sex: Female

DRUGS (6)
  1. LAMICTAL [Suspect]
     Dosage: 50MG PER DAY
     Route: 048
     Dates: start: 20120314, end: 20120318
  2. LAMICTAL [Suspect]
     Indication: DEPRESSIVE SYMPTOM
     Dosage: 25MG PER DAY
     Route: 048
     Dates: start: 20120309, end: 20120313
  3. LAMICTAL [Suspect]
     Dosage: 100MG PER DAY
     Route: 048
     Dates: start: 20120319, end: 20120410
  4. MEILAX [Suspect]
     Indication: TENSION
     Dosage: 1MG PER DAY
     Route: 048
  5. LITHIUM CARBONATE [Concomitant]
     Route: 048
  6. ZYPREXA [Concomitant]
     Dosage: 1IUAX PER DAY
     Route: 048

REACTIONS (7)
  - LIVER DISORDER [None]
  - ERYTHEMA MULTIFORME [None]
  - DRUG ERUPTION [None]
  - RASH [None]
  - ASTHENIA [None]
  - HEPATIC FUNCTION ABNORMAL [None]
  - HYPOMANIA [None]
